FAERS Safety Report 5215283-8 (Version None)
Quarter: 2006Q4

REPORT INFORMATION
  Report Type: 
  Country: None (occurrence: None)
  Receive Date: 20061122
  Receipt Date: 20060627
  Transmission Date: 20070319
  Serious: Yes (Other)
  Sender: FDA-Public Use
  Company Number: HQWYE485229JUN06

PATIENT
  Age: 57 Year
  Sex: Female
  Weight: 68.1 kg

DRUGS (1)
  1. PREMARIN [Suspect]
     Indication: VAGINAL DISORDER
     Dosage: 1 G 3X PER 1 WK, VAGINAL
     Route: 067
     Dates: start: 20010101

REACTIONS (2)
  - FUNGAL INFECTION [None]
  - URINARY TRACT INFECTION [None]
